FAERS Safety Report 4748873-7 (Version None)
Quarter: 2005Q3

REPORT INFORMATION
  Report Type: 
  Country: None (occurrence: None)
  Receive Date: 20050819
  Receipt Date: 20050812
  Transmission Date: 20060218
  Serious: Yes (Life-Threatening)
  Sender: FDA-Public Use
  Company Number: FR-GLAXOSMITHKLINE-B0391027A

PATIENT
  Age: 57 Year
  Sex: Female

DRUGS (5)
  1. AUGMENTIN '125' [Suspect]
     Indication: DRUG USE FOR UNKNOWN INDICATION
     Route: 042
     Dates: start: 20050316, end: 20050316
  2. PROPOFOL [Concomitant]
     Route: 042
     Dates: start: 20050316, end: 20050316
  3. MIDAZOLAM HCL [Concomitant]
     Route: 042
     Dates: start: 20050316, end: 20050316
  4. GENTAMICIN [Concomitant]
     Route: 042
     Dates: start: 20050316, end: 20050316
  5. NIMBEX [Concomitant]
     Route: 042
     Dates: start: 20050316, end: 20050316

REACTIONS (6)
  - ANAPHYLACTIC SHOCK [None]
  - GENERALISED ERYTHEMA [None]
  - HYPOTENSION [None]
  - ILL-DEFINED DISORDER [None]
  - OEDEMA MUCOSAL [None]
  - TACHYCARDIA [None]
